FAERS Safety Report 10703708 (Version 14)
Quarter: 2019Q1

REPORT INFORMATION
  Report Type: Report from Study
  Country: CA (occurrence: CA)
  Receive Date: 20150112
  Receipt Date: 20190206
  Transmission Date: 20190417
  Serious: Yes (Hospitalization, Other)
  Sender: FDA-Public Use
  Company Number: CA-ROCHE-1136281

PATIENT
  Age: 53 Year
  Sex: Female
  Weight: 86 kg

DRUGS (22)
  1. METFORMIN [Suspect]
     Active Substance: METFORMIN HYDROCHLORIDE
     Indication: DIABETES MELLITUS
     Route: 048
     Dates: start: 2012, end: 2012
  2. ACETAMINOPHEN. [Concomitant]
     Active Substance: ACETAMINOPHEN
     Indication: PREMEDICATION
     Route: 048
     Dates: start: 20110504
  3. INSULIN [Concomitant]
     Active Substance: INSULIN NOS
  4. RITUXAN [Suspect]
     Active Substance: RITUXIMAB
     Route: 042
     Dates: start: 20150114
  5. RITUXAN [Suspect]
     Active Substance: RITUXIMAB
     Route: 042
     Dates: start: 20170601
  6. LORAZEPAM. [Concomitant]
     Active Substance: LORAZEPAM
     Route: 065
  7. RITUXAN [Suspect]
     Active Substance: RITUXIMAB
     Indication: RHEUMATOID ARTHRITIS
     Dosage: PREVIOUS RITUXIMAB DOSE WAS ON 15/JUN/2017.?PREVIOUS RITUXIMAB DOSE WAS ON 28/AUG/2018
     Route: 042
     Dates: start: 20101014
  8. CLONAZEPAM. [Concomitant]
     Active Substance: CLONAZEPAM
  9. DIPHENHYDRAMINE HCL [Concomitant]
     Active Substance: DIPHENHYDRAMINE HYDROCHLORIDE
     Indication: PREMEDICATION
     Route: 048
     Dates: start: 20110504
  10. METHOTREXATE. [Concomitant]
     Active Substance: METHOTREXATE
  11. RITUXAN [Suspect]
     Active Substance: RITUXIMAB
     Indication: MYASTHENIA GRAVIS
     Route: 042
     Dates: start: 20110504
  12. RITUXAN [Suspect]
     Active Substance: RITUXIMAB
     Dosage: LAST INFUSION ON 11/JUL/2014
     Route: 042
     Dates: start: 20130530
  13. FOLIC ACID. [Concomitant]
     Active Substance: FOLIC ACID
  14. VITAMIN B12 [Concomitant]
     Active Substance: CYANOCOBALAMIN
  15. PROGESTERONE. [Concomitant]
     Active Substance: PROGESTERONE
  16. ESTROGEL [Concomitant]
     Active Substance: ESTRADIOL
  17. RITUXAN [Suspect]
     Active Substance: RITUXIMAB
     Route: 042
     Dates: start: 20150821
  18. TESTOSTERONE. [Concomitant]
     Active Substance: TESTOSTERONE
  19. METHYLPREDNISOLONE. [Concomitant]
     Active Substance: METHYLPREDNISOLONE
     Indication: PREMEDICATION
     Route: 042
     Dates: start: 20110504
  20. RITUXAN [Suspect]
     Active Substance: RITUXIMAB
     Route: 042
     Dates: start: 20120926
  21. VITAMIN B6 [Concomitant]
     Active Substance: PYRIDOXINE HYDROCHLORIDE
  22. MESTINON [Suspect]
     Active Substance: PYRIDOSTIGMINE BROMIDE
     Indication: PRODUCT USED FOR UNKNOWN INDICATION
     Route: 065
     Dates: end: 2012

REACTIONS (33)
  - Throat irritation [Recovering/Resolving]
  - Drug ineffective [Unknown]
  - Drug intolerance [Unknown]
  - Meningitis [Unknown]
  - Hordeolum [Unknown]
  - Weight increased [Recovering/Resolving]
  - Asthenia [Unknown]
  - Off label use [Unknown]
  - Pain [Not Recovered/Not Resolved]
  - Myasthenia gravis [Not Recovered/Not Resolved]
  - Ill-defined disorder [Unknown]
  - Influenza [Unknown]
  - Malaise [Unknown]
  - Upper limb fracture [Unknown]
  - Contusion [Recovered/Resolved]
  - Dyspnoea [Unknown]
  - Optic neuropathy [Recovering/Resolving]
  - Fall [Recovered/Resolved]
  - Pain [Not Recovered/Not Resolved]
  - Intentional product use issue [Unknown]
  - Myasthenia gravis [Unknown]
  - Diabetes mellitus inadequate control [Not Recovered/Not Resolved]
  - Fibromyalgia [Unknown]
  - Wrist fracture [Unknown]
  - Fall [Unknown]
  - Arthralgia [Not Recovered/Not Resolved]
  - Stress [Not Recovered/Not Resolved]
  - Solar lentigo [Recovered/Resolved]
  - Insomnia [Unknown]
  - Diabetes mellitus [Unknown]
  - Hepatic steatosis [Not Recovered/Not Resolved]
  - Arthritis [Not Recovered/Not Resolved]
  - Headache [Unknown]

NARRATIVE: CASE EVENT DATE: 2012
